FAERS Safety Report 15467028 (Version 2)
Quarter: 2018Q4

REPORT INFORMATION
  Report Type: Spontaneous
  Country: RU (occurrence: RU)
  Receive Date: 20181005
  Receipt Date: 20181008
  Transmission Date: 20190204
  Serious: Yes (Hospitalization, Other)
  Sender: FDA-Public Use
  Company Number: RU-TEVA-2018-RU-961340

PATIENT
  Age: 68 Year
  Sex: Female

DRUGS (3)
  1. TOPIROMAX [Concomitant]
  2. FINLEPSIN RETARD [Suspect]
     Active Substance: CARBAMAZEPINE
     Indication: TEMPORAL LOBE EPILEPSY
     Dosage: 600 MILLIGRAM DAILY;
     Route: 065
  3. LAMICTAL [Concomitant]
     Active Substance: LAMOTRIGINE

REACTIONS (6)
  - Epilepsy [Recovered/Resolved]
  - Heart rate decreased [Recovered/Resolved]
  - Loss of consciousness [Recovered/Resolved]
  - Sinoatrial block [Recovered/Resolved]
  - Dizziness [Recovered/Resolved]
  - Diplopia [Not Recovered/Not Resolved]
